FAERS Safety Report 5939233-1 (Version None)
Quarter: 2008Q4

REPORT INFORMATION
  Report Type: 
  Country: None (occurrence: None)
  Receive Date: 20081103
  Receipt Date: 20081022
  Transmission Date: 20090506
  Serious: Yes (Hospitalization)
  Sender: FDA-Public Use
  Company Number: GB-AVENTIS-200815865EU

PATIENT
  Age: 69 Year
  Sex: Male
  Weight: 70 kg

DRUGS (8)
  1. CO-AMILOFRUSE [Suspect]
     Dosage: DOSE: UNK
     Dates: start: 20080201
  2. PERINDOPRIL [Suspect]
     Dates: start: 20080201
  3. ASPIRIN [Concomitant]
  4. BISOPROLOL FUMARATE [Concomitant]
  5. CLOPIDOGREL [Concomitant]
     Dates: start: 20080101
  6. CO-AMILOFRUSE [Concomitant]
  7. OMEPRAZOLE [Concomitant]
     Dates: start: 20080101
  8. PERINDOPRIL [Concomitant]
     Dosage: DOSE: UNK

REACTIONS (5)
  - BLOOD CREATININE INCREASED [None]
  - BLOOD POTASSIUM INCREASED [None]
  - BLOOD UREA INCREASED [None]
  - HAEMOGLOBIN DECREASED [None]
  - HYPOTENSION [None]
